FAERS Safety Report 9010895 (Version 1)
Quarter: 2013Q1

REPORT INFORMATION
  Report Type: Spontaneous
  Country: NL (occurrence: NL)
  Receive Date: 20130109
  Receipt Date: 20130109
  Transmission Date: 20140127
  Serious: Yes (Hospitalization)
  Sender: FDA-Public Use
  Company Number: NL-SANOFI-AVENTIS-2013SA000712

PATIENT
  Age: 36 Year
  Sex: Male
  Weight: 100 kg

DRUGS (2)
  1. FEXOFENADINE HYDROCHLORIDE [Suspect]
     Indication: RHINITIS ALLERGIC
     Dosage: STRENGTH: 180MG
     Route: 048
     Dates: start: 2006
  2. TRIAMCINOLONE ACETONIDE [Concomitant]
     Dosage: STRENGTH: 1MG/G
     Route: 003
     Dates: start: 2010

REACTIONS (1)
  - Tendon rupture [Recovering/Resolving]
